FAERS Safety Report 24186005 (Version 2)
Quarter: 2024Q3

REPORT INFORMATION
  Report Type: Spontaneous
  Country: CA (occurrence: CA)
  Receive Date: 20240807
  Receipt Date: 20240927
  Transmission Date: 20241016
  Serious: Yes (Other)
  Sender: PFIZER
  Company Number: CA-PFIZER INC-202400228693

PATIENT
  Age: 44 Year
  Sex: Female
  Weight: 84.4 kg

DRUGS (1)
  1. ABRILADA [Suspect]
     Active Substance: ADALIMUMAB-AFZB
     Indication: Psoriatic arthropathy
     Dosage: 1 DF
     Route: 058
     Dates: start: 2022

REACTIONS (2)
  - Rectal prolapse repair [Unknown]
  - Drug ineffective [Unknown]
